FAERS Safety Report 7325938-7 (Version None)
Quarter: 2011Q1

REPORT INFORMATION
  Report Type: 
  Country: None (occurrence: None)
  Receive Date: 20110218
  Receipt Date: 20110207
  Transmission Date: 20110831
  Serious: Yes (Hospitalization)
  Sender: FDA-Public Use
  Company Number: 826015

PATIENT
  Sex: Female

DRUGS (1)
  1. CHLOROPROACINE HCL [Suspect]
     Indication: ANAESTHESIA
     Dosage: INTRATHECAL
     Route: 037

REACTIONS (3)
  - CAUDA EQUINA SYNDROME [None]
  - INCORRECT ROUTE OF DRUG ADMINISTRATION [None]
  - ARACHNOIDITIS [None]
